FAERS Safety Report 13018319 (Version 1)
Quarter: 2016Q4

REPORT INFORMATION
  Report Type: Spontaneous
  Country: ZA (occurrence: ZA)
  Receive Date: 20161212
  Receipt Date: 20161212
  Transmission Date: 20170207
  Serious: Yes (Death, Other)
  Sender: FDA-Public Use
  Company Number: ZA-SYNTHON BV-NL01PV16_42621

PATIENT
  Sex: Male

DRUGS (1)
  1. ADCO-ZOLPIDEM HEMITARTRATE [Suspect]
     Active Substance: ZOLPIDEM\ZOLPIDEM TARTRATE
     Dosage: UNK
     Route: 048

REACTIONS (5)
  - Dependence [Fatal]
  - Seizure [Unknown]
  - Altered state of consciousness [Unknown]
  - Overdose [Unknown]
  - Road traffic accident [Unknown]
